FAERS Safety Report 7304841-2 (Version None)
Quarter: 2011Q1

REPORT INFORMATION
  Report Type: 
  Country: None (occurrence: None)
  Receive Date: 20110222
  Receipt Date: 20110208
  Transmission Date: 20110831
  Serious: Yes (Hospitalization)
  Sender: FDA-Public Use
  Company Number: AU-ELI_LILLY_AND_COMPANY-AU201102001750

PATIENT
  Sex: Female
  Weight: 40 kg

DRUGS (2)
  1. FORTEO [Suspect]
     Indication: OSTEOPOROSIS
     Dosage: UNK, DAILY (1/D)
     Route: 065
     Dates: start: 20100810
  2. OXYGEN [Concomitant]
     Indication: PULMONARY FIBROSIS

REACTIONS (2)
  - URINARY TRACT INFECTION [None]
  - WEIGHT DECREASED [None]
